FAERS Safety Report 5348449-7 (Version None)
Quarter: 2007Q2

REPORT INFORMATION
  Report Type: 
  Country: None (occurrence: None)
  Receive Date: 20070605
  Receipt Date: 20070522
  Transmission Date: 20071010
  Serious: Yes (Death, Other)
  Sender: FDA-Public Use
  Company Number: 2007JP002339

PATIENT
  Sex: Male

DRUGS (7)
  1. PROGRAF [Suspect]
     Indication: STEM CELL TRANSPLANT
     Dosage: UNK, CONTINUOUS, IV DRIP
     Route: 041
  2. FLUDARABINE (FLUDARABINE) FORMULATION UNKNOWN [Concomitant]
  3. CYCLOPHOSPHAMIDE (CYCLOPHOSPHAMIDE) FORMULATION UNKNOWN [Concomitant]
  4. METHOTREXATE [Concomitant]
  5. BUSULFAN (BUSULFAN) FORMULATION UNKNOWN [Concomitant]
  6. MELPHALAN (MELPHALAN) FORMULATION UNKNOWN [Concomitant]
  7. METHYLPREDNISOLONE [Concomitant]

REACTIONS (3)
  - POSTRENAL FAILURE [None]
  - SHOCK [None]
  - UPPER GASTROINTESTINAL HAEMORRHAGE [None]
